FAERS Safety Report 9729012 (Version 1)
Quarter: 2013Q4

REPORT INFORMATION
  Report Type: Spontaneous
  Country: US (occurrence: US)
  Receive Date: 20131204
  Receipt Date: 20131204
  Transmission Date: 20140711
  Serious: Yes (Other)
  Sender: FDA-Public Use
  Company Number: US-TEVA-448337USA

PATIENT
  Age: 31 Year
  Sex: Female
  Weight: 77.18 kg

DRUGS (3)
  1. PARAGARD 380A [Suspect]
     Indication: CONTRACEPTION
     Route: 015
     Dates: start: 200904
  2. PLAN B ONE-STEP [Suspect]
  3. VITAMINS [Concomitant]

REACTIONS (1)
  - Haemorrhage [Not Recovered/Not Resolved]
